FAERS Safety Report 23859362 (Version 3)
Quarter: 2024Q3

REPORT INFORMATION
  Report Type: Spontaneous
  Country: CA (occurrence: CA)
  Receive Date: 20240515
  Receipt Date: 20240815
  Transmission Date: 20241017
  Serious: No
  Sender: PFIZER
  Company Number: CA-PFIZER INC-202400104843

PATIENT
  Age: 29 Year
  Sex: Female

DRUGS (1)
  1. DEPO-PROVERA [Suspect]
     Active Substance: MEDROXYPROGESTERONE ACETATE
     Dosage: 150 MG/ML

REACTIONS (6)
  - Device difficult to use [Unknown]
  - Wrong technique in device usage process [Unknown]
  - Incorrect dose administered by device [Unknown]
  - Device issue [Unknown]
  - Liquid product physical issue [Unknown]
  - Device deposit issue [Unknown]

NARRATIVE: CASE EVENT DATE: 20240509
